FAERS Safety Report 6193423-4 (Version None)
Quarter: 2009Q2

REPORT INFORMATION
  Report Type: 
  Country: None (occurrence: None)
  Receive Date: 20090518
  Receipt Date: 20081015
  Transmission Date: 20091009
  Serious: No
  Sender: FDA-Public Use
  Company Number: US-ABBOTT-08P-163-0481761-00

PATIENT
  Sex: Female

DRUGS (2)
  1. AZMACORT [Suspect]
     Indication: ASTHMA
     Route: 055
     Dates: start: 20070101
  2. FLUTICASONE PROPIONATE [Concomitant]
     Indication: DRUG USE FOR UNKNOWN INDICATION

REACTIONS (2)
  - UNDERDOSE [None]
  - WHEEZING [None]
